FAERS Safety Report 9753289 (Version 2)
Quarter: 2013Q4

REPORT INFORMATION
  Report Type: Spontaneous
  Country: US (occurrence: US)
  Receive Date: 20131213
  Receipt Date: 20131216
  Transmission Date: 20140711
  Serious: No
  Sender: FDA-Public Use
  Company Number: US-TEVA-402890USA

PATIENT
  Age: 47 Year
  Sex: Female
  Weight: 78.54 kg

DRUGS (2)
  1. PARAGARD 380A [Suspect]
     Indication: CONTRACEPTION
     Route: 015
     Dates: start: 20130205, end: 20130312
  2. RETIN A [Concomitant]
     Indication: ACNE

REACTIONS (9)
  - Vaginal prolapse [Not Recovered/Not Resolved]
  - Cystocele [Not Recovered/Not Resolved]
  - Rectocele [Not Recovered/Not Resolved]
  - Procedural pain [Recovered/Resolved]
  - Vulvovaginal pain [Not Recovered/Not Resolved]
  - Back pain [Not Recovered/Not Resolved]
  - Proctalgia [Not Recovered/Not Resolved]
  - Urethral pain [Recovered/Resolved]
  - Neuralgia [Unknown]
